FAERS Safety Report 9235680 (Version 1)
Quarter: 2013Q1

REPORT INFORMATION
  Report Type: Spontaneous
  Country: US (occurrence: None)
  Receive Date: 20121031
  Receipt Date: 20121031
  Transmission Date: 20140127
  Serious: Yes (Other)
  Sender: FDA-Public Use
  Company Number: PHEH2012US011139

PATIENT
  Age: 49 Year
  Sex: Female

DRUGS (6)
  1. GILENYA (FTY) CAPSULE, 0.5MG [Suspect]
     Indication: MULTIPLE SCLEROSIS
     Route: 048
     Dates: start: 20101214, end: 20120512
  2. LORAZEPAM (LORAZEPAM) [Concomitant]
  3. ZOLOFT (SERTRALINE HYDROCHLORIDE) [Concomitant]
  4. AMBIEN (ZOLPIDEM TARTRATE) [Concomitant]
  5. MYSOLINE (PRIMIDONE) [Concomitant]
  6. PROGESTERONE (PROGESTERONE) [Concomitant]

REACTIONS (4)
  - Multiple sclerosis [None]
  - Demyelination [None]
  - Feeling abnormal [None]
  - Fatigue [None]
